FAERS Safety Report 6924002-6 (Version None)
Quarter: 2010Q3

REPORT INFORMATION
  Report Type: 
  Country: None (occurrence: None)
  Receive Date: 20100813
  Receipt Date: 20100810
  Transmission Date: 20110219
  Serious: Yes (Life-Threatening, Hospitalization)
  Sender: FDA-Public Use
  Company Number: PHHY2010NL23981

PATIENT
  Sex: Male

DRUGS (20)
  1. ACLASTA [Suspect]
     Indication: OSTEOPOROSIS
     Dosage: 5 MG
     Route: 042
     Dates: start: 20100414, end: 20100414
  2. MOTILIUM SUPPOSITORY [Suspect]
     Indication: NAUSEA
     Dosage: 60 MG
     Dates: start: 20100414, end: 20100414
  3. FLAGYL [Concomitant]
  4. ZINACEF [Concomitant]
  5. HALDOL [Concomitant]
  6. NEXIUM [Concomitant]
  7. PREDNISOLONE [Concomitant]
  8. PLAVIX [Concomitant]
  9. RITALIN [Concomitant]
  10. SOTALOL HCL [Concomitant]
  11. ZOCOR [Concomitant]
  12. ZYLORIC [Concomitant]
  13. FLUIMICIL [Concomitant]
  14. FRAXIPARINE [Concomitant]
  15. IPRAMOL [Concomitant]
  16. AMLODIPINE [Concomitant]
  17. DIPADAMOL [Concomitant]
  18. PERINDOPRIL [Concomitant]
  19. ASCAL [Concomitant]
  20. COLCHICINE [Concomitant]

REACTIONS (9)
  - ABDOMINAL PAIN [None]
  - HYPERHIDROSIS [None]
  - ILEUS [None]
  - MALAISE [None]
  - PNEUMONIA ASPIRATION [None]
  - POSTOPERATIVE ADHESION [None]
  - SURGERY [None]
  - VOMITING [None]
  - YAWNING [None]
